FAERS Safety Report 7539144-4 (Version None)
Quarter: 2011Q2

REPORT INFORMATION
  Report Type: 
  Country: None (occurrence: None)
  Receive Date: 20110610
  Receipt Date: 20110524
  Transmission Date: 20111010
  Serious: No
  Sender: FDA-Public Use
  Company Number: US-B.I. PHARMACEUTICALS,INC./RIDGEFIELD-2011-BP-11288BP

PATIENT
  Age: 73 Year
  Sex: Female

DRUGS (9)
  1. SPIRIVA [Suspect]
     Indication: DYSPNOEA
  2. OMEPRAZOLE [Concomitant]
     Indication: GASTROOESOPHAGEAL REFLUX DISEASE
  3. ASPIRIN [Concomitant]
     Route: 048
  4. SPIRIVA [Suspect]
     Indication: CHRONIC OBSTRUCTIVE PULMONARY DISEASE
     Dosage: 18 MCG
     Route: 055
     Dates: start: 20091001
  5. MINOCYCLINE HCL [Concomitant]
  6. LISINOPRIL [Concomitant]
     Indication: HYPERTENSION
     Route: 048
  7. VITAMIN TAB [Concomitant]
     Route: 048
  8. VYTORIN [Concomitant]
     Indication: BLOOD CHOLESTEROL INCREASED
     Route: 048
  9. OMEPRAZOLE [Concomitant]
     Indication: DYSPEPSIA
     Dosage: 80 MG
     Route: 048

REACTIONS (4)
  - SPEECH DISORDER [None]
  - DYSPHONIA [None]
  - BULLOUS LUNG DISEASE [None]
  - NASAL CONGESTION [None]
